FAERS Safety Report 6089439-9 (Version None)
Quarter: 2009Q1

REPORT INFORMATION
  Report Type: 
  Country: None (occurrence: None)
  Receive Date: 20090220
  Receipt Date: 20090220
  Transmission Date: 20090719
  Serious: Yes (Other)
  Sender: FDA-Public Use
  Company Number: None

PATIENT
  Age: 36 Year
  Sex: Female
  Weight: 117.9352 kg

DRUGS (2)
  1. XYLOCAINE [Suspect]
     Indication: ANAESTHESIA PROCEDURE
     Dosage: 2% OTHER
     Route: 050
     Dates: start: 20090216, end: 20090216
  2. XYLOCAINE [Suspect]
     Indication: NAIL OPERATION
     Dosage: 2% OTHER
     Route: 050
     Dates: start: 20090216, end: 20090216

REACTIONS (5)
  - ARTHRALGIA [None]
  - DRUG EXPOSURE DURING PREGNANCY [None]
  - JOINT SWELLING [None]
  - OEDEMA PERIPHERAL [None]
  - PAIN IN EXTREMITY [None]
